FAERS Safety Report 19015271 (Version 1)
Quarter: 2021Q1

REPORT INFORMATION
  Report Type: Spontaneous
  Country: ES (occurrence: ES)
  Receive Date: 20210316
  Receipt Date: 20210316
  Transmission Date: 20210420
  Serious: Yes (Life-Threatening, Hospitalization)
  Sender: FDA-Public Use
  Company Number: ES-SA-2021SA089786

PATIENT
  Age: 33 Year
  Sex: Male
  Weight: 62 kg

DRUGS (1)
  1. TRIAMCINOLONE ACETONIDE. [Suspect]
     Active Substance: TRIAMCINOLONE ACETONIDE
     Indication: NECK PAIN
     Dosage: 1 MG SINGLE DOSE
     Route: 030
     Dates: start: 20210208, end: 20210208

REACTIONS (1)
  - Abscess bacterial [Recovering/Resolving]

NARRATIVE: CASE EVENT DATE: 20210215
